FAERS Safety Report 16694967 (Version 2)
Quarter: 2019Q4

REPORT INFORMATION
  Report Type: Spontaneous
  Country: NP (occurrence: NP)
  Receive Date: 20190812
  Receipt Date: 20191019
  Transmission Date: 20200122
  Serious: Yes (Death, Other)
  Sender: FDA-Public Use
  Company Number: PHHY2019NP186434

PATIENT
  Age: 63 Year
  Sex: Male

DRUGS (1)
  1. GLIVEC [Suspect]
     Active Substance: IMATINIB MESYLATE
     Indication: CHRONIC MYELOID LEUKAEMIA
     Dosage: 400 MG, UNK (4 X 100 MG TABLETS)
     Route: 065

REACTIONS (3)
  - Metastatic renal cell carcinoma [Unknown]
  - Death [Fatal]
  - Second primary malignancy [Unknown]

NARRATIVE: CASE EVENT DATE: 20190928
